FAERS Safety Report 6330961-5 (Version None)
Quarter: 2009Q3

REPORT INFORMATION
  Report Type: 
  Country: None (occurrence: None)
  Receive Date: 20090827
  Receipt Date: 20090826
  Transmission Date: 20100115
  Serious: Yes (Hospitalization)
  Sender: FDA-Public Use
  Company Number: A0804532A

PATIENT
  Age: 18 Year
  Sex: Female

DRUGS (1)
  1. ALLI [Suspect]
     Indication: WEIGHT LOSS DIET
     Route: 048
     Dates: start: 20090801

REACTIONS (4)
  - ABDOMINAL PAIN LOWER [None]
  - ENTERITIS INFECTIOUS [None]
  - FATIGUE [None]
  - SOMNOLENCE [None]
